FAERS Safety Report 9314342 (Version 2)
Quarter: 2013Q3

REPORT INFORMATION
  Report Type: Spontaneous
  Country: US (occurrence: None)
  Receive Date: 20130522
  Receipt Date: 20130723
  Transmission Date: 20140515
  Serious: Yes (Hospitalization)
  Sender: FDA-Public Use
  Company Number: US-011728

PATIENT
  Age: 67 Year
  Sex: Male
  Weight: 73.48 kg

DRUGS (6)
  1. DEGARELIX [Suspect]
     Indication: PROSTATE CANCER
     Dosage: 1X MONTH, (INITIAL DOSE OF 2 INJECTIONS)
     Dates: start: 201106
  2. CALCIUM + VITAMIN D /01483701/ [Concomitant]
  3. OMEPRAZOLE [Concomitant]
  4. MEGESTROL [Concomitant]
  5. BICALUTAMIDE [Concomitant]
  6. NAPROXEN [Concomitant]

REACTIONS (11)
  - Dehydration [None]
  - Injection site pain [None]
  - Injection site haematoma [None]
  - Heart rate increased [None]
  - Dyspnoea [None]
  - Pyrexia [None]
  - Chills [None]
  - Injection site swelling [None]
  - Injection site erythema [None]
  - Injection site discomfort [None]
  - Injection site nodule [None]
